FAERS Safety Report 25069283 (Version 2)
Quarter: 2025Q1

REPORT INFORMATION
  Report Type: Report from Study
  Country: US (occurrence: US)
  Receive Date: 20250312
  Receipt Date: 20250328
  Transmission Date: 20250408
  Serious: Yes (Hospitalization)
  Sender: MYLAN
  Company Number: US-MYLANLABS-2025M1020153

PATIENT
  Sex: Male
  Weight: 114.3 kg

DRUGS (4)
  1. CLOZAPINE [Suspect]
     Active Substance: CLOZAPINE
     Indication: Product used for unknown indication
  2. LITHIUM [Concomitant]
     Active Substance: LITHIUM
  3. CLOZAPINE [Concomitant]
     Active Substance: CLOZAPINE
     Dosage: 600 MILLIGRAM, PM (HS)
  4. LORAZEPAM [Concomitant]
     Active Substance: LORAZEPAM

REACTIONS (5)
  - Psychiatric symptom [Unknown]
  - Suicidal ideation [Unknown]
  - Agitation [Unknown]
  - Anxiety [Unknown]
  - Irritability [Unknown]
